FAERS Safety Report 10032674 (Version 3)
Quarter: 2014Q2

REPORT INFORMATION
  Report Type: Spontaneous
  Country: FR (occurrence: FR)
  Receive Date: 20140324
  Receipt Date: 20140515
  Transmission Date: 20141212
  Serious: Yes (Other)
  Sender: FDA-Public Use
  Company Number: FR-VIIV HEALTHCARE LIMITED-B0891453A

PATIENT
  Age: 29 Year
  Sex: Female
  Weight: 50 kg

DRUGS (7)
  1. RETROVIR [Suspect]
     Indication: HIV INFECTION
     Dosage: 250MG TWICE PER DAY
     Route: 065
     Dates: start: 20120415
  2. NORVIR [Suspect]
     Indication: HIV INFECTION
     Dosage: 100MG TWICE PER DAY
     Route: 048
     Dates: start: 20100415
  3. PREZISTA [Suspect]
     Indication: HIV INFECTION
     Dosage: 600MG TWICE PER DAY
     Route: 048
     Dates: start: 20100415
  4. PNEUMOCOCCAL VACCINE [Suspect]
     Indication: PROPHYLAXIS
     Route: 065
     Dates: start: 20131120, end: 20131120
  5. DPT VACCINE + POLIOMYELITIS VACCINE [Suspect]
     Indication: PROPHYLAXIS
     Route: 065
     Dates: start: 20131120, end: 20131120
  6. CELSENTRI [Suspect]
     Indication: HIV INFECTION
     Dosage: 150MG TWICE PER DAY
     Route: 048
     Dates: start: 20120415
  7. ZIAGEN [Suspect]
     Indication: HIV INFECTION
     Dosage: 300MG TWICE PER DAY
     Route: 048
     Dates: start: 20120415

REACTIONS (4)
  - Hepatocellular injury [Recovered/Resolved]
  - Cholestasis of pregnancy [Recovered/Resolved]
  - Exposure during pregnancy [Unknown]
  - Live birth [Unknown]
